FAERS Safety Report 9885217 (Version 5)
Quarter: 2014Q2

REPORT INFORMATION
  Report Type: Spontaneous
  Country: US (occurrence: US)
  Receive Date: 20140210
  Receipt Date: 20140514
  Transmission Date: 20141212
  Serious: Yes (Death)
  Sender: FDA-Public Use
  Company Number: US-PFIZER INC-2014034864

PATIENT
  Age: 65 Year
  Sex: Male

DRUGS (3)
  1. INLYTA [Suspect]
     Indication: ADENOID CYSTIC CARCINOMA OF SALIVARY GLAND
     Dosage: 3 MG, 2X/DAY
     Route: 048
     Dates: start: 201308
  2. INLYTA [Suspect]
     Dosage: 5 MG, 2X/DAY
     Route: 048
     Dates: start: 201308
  3. INLYTA [Suspect]
     Dosage: UNK
     Route: 048
     Dates: start: 20131010, end: 20131219

REACTIONS (5)
  - Disease progression [Fatal]
  - Adenoid cystic carcinoma of salivary gland [Fatal]
  - Furuncle [Unknown]
  - Palmar-plantar erythrodysaesthesia syndrome [Recovered/Resolved]
  - Off label use [Unknown]
